FAERS Safety Report 11535342 (Version 1)
Quarter: 2015Q3

REPORT INFORMATION
  Report Type: Spontaneous
  Country: None (occurrence: None)
  Receive Date: 20150921
  Receipt Date: 20150921
  Transmission Date: 20151125
  Serious: Yes (Life-Threatening)
  Sender: FDA-Public Use
  Company Number: None

PATIENT
  Age: 64 Year
  Sex: Male
  Weight: 79.83 kg

DRUGS (11)
  1. DOCUSATE [Concomitant]
     Active Substance: DOCUSATE
  2. METOPROLOL XL [Concomitant]
     Active Substance: METOPROLOL
  3. ROSUVASTATIN [Concomitant]
     Active Substance: ROSUVASTATIN
  4. ACETAMINOPHEN. [Concomitant]
     Active Substance: ACETAMINOPHEN
  5. KCL [Concomitant]
     Active Substance: POTASSIUM CHLORIDE
  6. RIVAROXABAN 20MG [Suspect]
     Active Substance: RIVAROXABAN
     Dates: start: 20150711
  7. KETOROLAC [Suspect]
     Active Substance: KETOROLAC\KETOROLAC TROMETHAMINE
     Dates: start: 20150711
  8. CELECOXIB. [Concomitant]
     Active Substance: CELECOXIB
  9. HYDROCODONE/ACETAMINOPHEN [Concomitant]
     Active Substance: ACETAMINOPHEN\HYDROCODONE
  10. HYDROMORPHONE [Concomitant]
     Active Substance: HYDROMORPHONE
  11. ONDANSETRON [Concomitant]
     Active Substance: ONDANSETRON

REACTIONS (5)
  - Haemoglobin decreased [None]
  - Abdominal wall haematoma [None]
  - Haematocrit decreased [None]
  - Peritoneal haemorrhage [None]
  - Extravasation blood [None]

NARRATIVE: CASE EVENT DATE: 20150711
